FAERS Safety Report 23999941 (Version 2)
Quarter: 2024Q3

REPORT INFORMATION
  Report Type: Spontaneous
  Country: US (occurrence: US)
  Receive Date: 20240621
  Receipt Date: 20240801
  Transmission Date: 20241016
  Serious: No
  Sender: MYLAN
  Company Number: US-MYLANLABS-2024M1053777

PATIENT
  Age: 83 Year
  Sex: Male
  Weight: 68.04 kg

DRUGS (5)
  1. EMSAM [Suspect]
     Active Substance: SELEGILINE
     Indication: Parkinson^s disease
     Dosage: 6 MILLIGRAM, QD
     Route: 062
     Dates: start: 20240603
  2. CARBIDOPA [Concomitant]
     Active Substance: CARBIDOPA
     Dosage: UNK
     Route: 065
  3. LEVODOPA [Concomitant]
     Active Substance: LEVODOPA
     Dosage: UNK
     Route: 065
  4. PROSCAR [Concomitant]
     Active Substance: FINASTERIDE
     Dosage: UNK
     Route: 065
  5. CLOZAPINE [Concomitant]
     Active Substance: CLOZAPINE
     Dosage: UNK
     Route: 065

REACTIONS (2)
  - Product adhesion issue [Unknown]
  - Off label use [Unknown]

NARRATIVE: CASE EVENT DATE: 20240603
